FAERS Safety Report 18211901 (Version 2)
Quarter: 2020Q4

REPORT INFORMATION
  Report Type: Report from Study
  Country: None (occurrence: US)
  Receive Date: 20200831
  Receipt Date: 20201003
  Transmission Date: 20210113
  Serious: Yes (Other)
  Sender: FDA-Public Use
  Company Number: US-ABBVIE-20K-163-3497606-00

PATIENT
  Sex: Male

DRUGS (8)
  1. MELOXICAM. [Concomitant]
     Active Substance: MELOXICAM
     Indication: PRODUCT USED FOR UNKNOWN INDICATION
  2. VENLAFAXINE [Concomitant]
     Active Substance: VENLAFAXINE HYDROCHLORIDE
  3. ENBREL [Suspect]
     Active Substance: ETANERCEPT
     Indication: PRODUCT USED FOR UNKNOWN INDICATION
     Route: 065
  4. VENLAFAXINE [Concomitant]
     Active Substance: VENLAFAXINE HYDROCHLORIDE
     Indication: PRODUCT USED FOR UNKNOWN INDICATION
     Dosage: DOSE DECREASED
  5. HUMIRA [Suspect]
     Active Substance: ADALIMUMAB
     Indication: PSORIATIC ARTHROPATHY
     Route: 058
     Dates: start: 20200611, end: 2020
  6. EFFEXOR [Concomitant]
     Active Substance: VENLAFAXINE HYDROCHLORIDE
     Indication: PRODUCT USED FOR UNKNOWN INDICATION
  7. HUMIRA [Suspect]
     Active Substance: ADALIMUMAB
     Indication: PSORIASIS
     Route: 058
     Dates: start: 20200623
  8. DOXYCYCLINE. [Concomitant]
     Active Substance: DOXYCYCLINE
     Indication: PRODUCT USED FOR UNKNOWN INDICATION

REACTIONS (18)
  - Joint swelling [Recovering/Resolving]
  - Hyperhidrosis [Recovering/Resolving]
  - Fracture nonunion [Not Recovered/Not Resolved]
  - Device breakage [Unknown]
  - Joint stiffness [Recovering/Resolving]
  - Fracture [Unknown]
  - Nasal ulcer [Unknown]
  - Loss of personal independence in daily activities [Unknown]
  - Acne [Unknown]
  - Hot flush [Not Recovered/Not Resolved]
  - Gait disturbance [Unknown]
  - Migraine [Not Recovered/Not Resolved]
  - Pain [Recovering/Resolving]
  - Hidradenitis [Recovering/Resolving]
  - Osteoarthritis [Unknown]
  - Scab [Unknown]
  - Arthralgia [Recovering/Resolving]
  - Rash [Unknown]

NARRATIVE: CASE EVENT DATE: 2020
